FAERS Safety Report 6161879-9 (Version None)
Quarter: 2009Q2

REPORT INFORMATION
  Report Type: 
  Country: None (occurrence: None)
  Receive Date: 20090421
  Receipt Date: 20090223
  Transmission Date: 20091009
  Serious: No
  Sender: FDA-Public Use
  Company Number: B0552669A

PATIENT
  Sex: Female
  Weight: 5.6 kg

DRUGS (3)
  1. ZANTAC [Suspect]
     Dosage: 6.6ML THREE TIMES PER DAY
     Route: 048
     Dates: start: 20081223, end: 20081231
  2. DOMPERIDONE [Concomitant]
     Dosage: .225MG FOUR TIMES PER DAY
  3. NEOCATE [Concomitant]

REACTIONS (3)
  - DRUG DISPENSING ERROR [None]
  - JAUNDICE [None]
  - OVERDOSE [None]
